FAERS Safety Report 24093039 (Version 2)
Quarter: 2024Q3

REPORT INFORMATION
  Report Type: Spontaneous
  Country: US (occurrence: US)
  Receive Date: 20240715
  Receipt Date: 20240904
  Transmission Date: 20241016
  Serious: Yes (Other)
  Sender: SANDOZ
  Company Number: US-002147023-NVSC2023US169164

PATIENT
  Sex: Female
  Weight: 68.027 kg

DRUGS (3)
  1. COSENTYX [Suspect]
     Active Substance: SECUKINUMAB
     Indication: Psoriasis
     Dosage: UNK
     Route: 065
  2. LEFLUNOMIDE [Suspect]
     Active Substance: LEFLUNOMIDE
     Indication: Psoriasis
     Dosage: UNK
     Route: 065
  3. METHOTREXATE [Suspect]
     Active Substance: METHOTREXATE
     Indication: Psoriasis
     Dosage: UNK
     Route: 065

REACTIONS (28)
  - Psoriatic arthropathy [Unknown]
  - Peripheral swelling [Unknown]
  - Musculoskeletal stiffness [Unknown]
  - Joint swelling [Unknown]
  - Inflammation [Unknown]
  - Neck pain [Unknown]
  - Onychoclasis [Unknown]
  - Skin lesion [Unknown]
  - Back pain [Unknown]
  - Blood creatinine decreased [Unknown]
  - Sacroiliitis [Unknown]
  - Pain [Unknown]
  - Rash macular [Unknown]
  - Rash papular [Unknown]
  - Dry skin [Unknown]
  - Trigger finger [Unknown]
  - Nail discolouration [Unknown]
  - Coccydynia [Unknown]
  - Contusion [Unknown]
  - Dyspnoea [Unknown]
  - Cough [Unknown]
  - Rash [Unknown]
  - Arthralgia [Unknown]
  - Influenza like illness [Unknown]
  - Myalgia [Unknown]
  - Pleuritic pain [Unknown]
  - Alopecia [Recovering/Resolving]
  - Therapeutic product effect incomplete [Unknown]
